FAERS Safety Report 8003958-7 (Version None)
Quarter: 2011Q4

REPORT INFORMATION
  Report Type: 
  Country: None (occurrence: None)
  Receive Date: 20111222
  Receipt Date: 20111213
  Transmission Date: 20120403
  Serious: Yes (Hospitalization, Disabling)
  Sender: FDA-Public Use
  Company Number: US-BAYER-2011-028033

PATIENT
  Age: 33 Year
  Sex: Female
  Weight: 90.703 kg

DRUGS (6)
  1. FLEXERIL [Concomitant]
  2. YAZ [Suspect]
     Indication: CONTRACEPTION
     Dosage: UNK
     Dates: start: 20071101, end: 20090401
  3. YAZ [Suspect]
     Indication: METRORRHAGIA
  4. IBUPROFEN (ADVIL) [Concomitant]
  5. OXYCODONE HCL [Concomitant]
     Dosage: UNK
     Dates: start: 20060101
  6. METFORMIN HCL [Concomitant]
     Dosage: UNK
     Dates: start: 19960101

REACTIONS (2)
  - DEEP VEIN THROMBOSIS [None]
  - AXILLARY VEIN THROMBOSIS [None]
